FAERS Safety Report 24217406 (Version 1)
Quarter: 2024Q3

REPORT INFORMATION
  Report Type: Spontaneous
  Country: US (occurrence: US)
  Receive Date: 20240816
  Receipt Date: 20240816
  Transmission Date: 20241017
  Serious: Yes (Death, Life-Threatening, Hospitalization)
  Sender: AMGEN
  Company Number: US-AMGEN-USASP2024162528

PATIENT
  Age: 77 Year
  Sex: Female

DRUGS (1)
  1. PREDNISONE [Suspect]
     Active Substance: PREDNISONE
     Indication: Myasthenia gravis
     Dosage: UNK
     Route: 065

REACTIONS (6)
  - Stress cardiomyopathy [Fatal]
  - Myasthenia gravis [Fatal]
  - Respiratory failure [Unknown]
  - Hypokinesia [Unknown]
  - Hypotension [Unknown]
  - Hyperkinesia [Unknown]
